FAERS Safety Report 10771305 (Version 1)
Quarter: 2015Q1

REPORT INFORMATION
  Report Type: Spontaneous
  Country: US (occurrence: US)
  Receive Date: 20150206
  Receipt Date: 20150206
  Transmission Date: 20150721
  Serious: Yes (Other)
  Sender: FDA-Public Use
  Company Number: US-TEVA-538866USA

PATIENT
  Sex: Male

DRUGS (1)
  1. FOLINIC ACID [Suspect]
     Active Substance: LEUCOVORIN
     Route: 065

REACTIONS (1)
  - Disease progression [Unknown]
